FAERS Safety Report 10597894 (Version 1)
Quarter: 2014Q4

REPORT INFORMATION
  Report Type: Spontaneous
  Country: US (occurrence: None)
  Receive Date: 20141120
  Receipt Date: 20141120
  Transmission Date: 20150529
  Serious: Yes (Hospitalization, Disabling)
  Sender: FDA-Public Use
  Company Number: None

PATIENT
  Age: 55 Year
  Sex: Female
  Weight: 52.62 kg

DRUGS (2)
  1. HYDROCODONE 7.5/500 [Suspect]
     Active Substance: ACETAMINOPHEN\HYDROCODONE
     Indication: RHEUMATOID ARTHRITIS
     Dosage: 4 PER DAY  AS NEEDED
  2. HYDROCODONE 7.5/500 [Suspect]
     Active Substance: ACETAMINOPHEN\HYDROCODONE
     Indication: BACK PAIN
     Dosage: 4 PER DAY  AS NEEDED

REACTIONS (5)
  - Vomiting [None]
  - Diarrhoea [None]
  - Weight decreased [None]
  - Abdominal pain upper [None]
  - Decreased appetite [None]
